FAERS Safety Report 14379684 (Version 1)
Quarter: 2018Q1

REPORT INFORMATION
  Report Type: Report from Study
  Country: US (occurrence: US)
  Receive Date: 20180112
  Receipt Date: 20180112
  Transmission Date: 20180509
  Serious: No
  Sender: FDA-Public Use
  Company Number: US-PUMA BIOTECHNOLOGY, LTD.-2017US011475

PATIENT

DRUGS (5)
  1. ALAVERY [Concomitant]
     Indication: HYPERSENSITIVITY
     Dosage: UNK
  2. NERLYNX [Suspect]
     Active Substance: NERATINIB
     Indication: NEOPLASM MALIGNANT
     Dosage: UNK, DAILY
     Route: 048
     Dates: start: 20170804
  3. ALAVERY [Concomitant]
     Indication: SINUSITIS
  4. AMITRIPTYLINE HCL [Concomitant]
     Active Substance: AMITRIPTYLINE
     Indication: PRODUCT USED FOR UNKNOWN INDICATION
  5. IMODIUM [Concomitant]
     Active Substance: LOPERAMIDE HYDROCHLORIDE
     Indication: DIARRHOEA

REACTIONS (2)
  - Dyspepsia [Unknown]
  - Diarrhoea [Unknown]

NARRATIVE: CASE EVENT DATE: 20170907
